FAERS Safety Report 5911637-2 (Version None)
Quarter: 2008Q4

REPORT INFORMATION
  Report Type: 
  Country: None (occurrence: None)
  Receive Date: 20081003
  Receipt Date: 20080918
  Transmission Date: 20090506
  Serious: Yes (Hospitalization)
  Sender: FDA-Public Use
  Company Number: 238897J08USA

PATIENT
  Age: 63 Year
  Sex: Female

DRUGS (2)
  1. REBIF [Suspect]
     Indication: MULTIPLE SCLEROSIS
     Dosage: 44 MCG, 3 IN 1 WEEKS, SUBCUTANEOUS
     Route: 058
     Dates: start: 20050727
  2. ATENOLOL [Concomitant]

REACTIONS (5)
  - BACK PAIN [None]
  - COLLAPSE OF LUNG [None]
  - COUGH [None]
  - DYSPNOEA [None]
  - NECK PAIN [None]
